FAERS Safety Report 20586359 (Version 2)
Quarter: 2022Q1

REPORT INFORMATION
  Report Type: Spontaneous
  Country: US (occurrence: US)
  Receive Date: 20220313
  Receipt Date: 20220318
  Transmission Date: 20220423
  Serious: Yes (Life-Threatening, Hospitalization, Other)
  Sender: FDA-Public Use
  Company Number: US-MLMSERVICE-20220224-3393850-1

PATIENT
  Sex: Female

DRUGS (1)
  1. METHOTREXATE [Suspect]
     Active Substance: METHOTREXATE
     Indication: Abortion incomplete
     Dosage: UNK
     Route: 064

REACTIONS (3)
  - Ischaemia [Unknown]
  - Moebius II syndrome [Unknown]
  - Foetal exposure during pregnancy [Unknown]
